FAERS Safety Report 23804860 (Version 1)
Quarter: 2024Q2

REPORT INFORMATION
  Report Type: Report from Study
  Country: US (occurrence: US)
  Receive Date: 20240501
  Receipt Date: 20240501
  Transmission Date: 20240715
  Serious: Yes (Other)
  Sender: FDA-Public Use
  Company Number: US-ABBVIE-5739781

PATIENT
  Age: 53 Year
  Sex: Female

DRUGS (1)
  1. RINVOQ [Suspect]
     Active Substance: UPADACITINIB
     Indication: Rheumatoid arthritis
     Route: 048
     Dates: start: 20230821

REACTIONS (4)
  - Hysterectomy [Unknown]
  - Hepatic enzyme increased [Recovered/Resolved]
  - Scleritis [Recovering/Resolving]
  - Hepatic mass [Recovered/Resolved]

NARRATIVE: CASE EVENT DATE: 20240202
